FAERS Safety Report 9523131 (Version 1)
Quarter: 2013Q3

REPORT INFORMATION
  Report Type: Spontaneous
  Country: NO (occurrence: NO)
  Receive Date: 20130913
  Receipt Date: 20130913
  Transmission Date: 20140515
  Serious: Yes (Hospitalization, Other)
  Sender: FDA-Public Use
  Company Number: NO-009507513-1309NOR002850

PATIENT
  Age: 74 Year
  Sex: Male

DRUGS (9)
  1. COZAAR 50 MG [Suspect]
     Dosage: 50 MG, UNK
  2. PERSANTIN RETARD [Interacting]
     Dosage: 200 MG, 2X/DAY
  3. EFEXOR DEPOT [Interacting]
     Dosage: 37.5 MG, UNK
  4. ALBYL-E [Interacting]
     Dosage: 75 MG, UNK
  5. PARACET [Interacting]
     Dosage: 1 G, 4X/DAY
  6. TOVIAZ [Interacting]
     Dosage: UNK
  7. WELLBUTRIN [Interacting]
     Dosage: 150 MG, UNK
  8. LIPITOR [Interacting]
     Dosage: 40 MG, UNK
  9. OMNIC [Interacting]

REACTIONS (10)
  - Dry mouth [Unknown]
  - Benign prostatic hyperplasia [Unknown]
  - Somnolence [Unknown]
  - Fall [Unknown]
  - Listless [Unknown]
  - Fine motor delay [Unknown]
  - Urinary retention [Unknown]
  - General physical health deterioration [Unknown]
  - Drug interaction [Unknown]
  - Dizziness [Unknown]
